FAERS Safety Report 5163195-0 (Version None)
Quarter: 2006Q4

REPORT INFORMATION
  Report Type: 
  Country: None (occurrence: None)
  Receive Date: 20061204
  Receipt Date: 20060327
  Transmission Date: 20070319
  Serious: Yes (Hospitalization, Other)
  Sender: FDA-Public Use
  Company Number: DE-JNJFOC-20060306843

PATIENT
  Sex: Female
  Weight: 72 kg

DRUGS (2)
  1. TOPAMAX [Suspect]
     Indication: EPILEPSY
     Dosage: 1-0-1
     Route: 048
  2. CELESTON [Suspect]
     Indication: ACUTE RESPIRATORY DISTRESS SYNDROME
     Dates: start: 20060821, end: 20060822

REACTIONS (3)
  - ANTEPARTUM HAEMORRHAGE [None]
  - DRUG EXPOSURE DURING PREGNANCY [None]
  - THREATENED LABOUR [None]
